FAERS Safety Report 24971131 (Version 1)
Quarter: 2025Q1

REPORT INFORMATION
  Report Type: Spontaneous
  Country: TW (occurrence: TW)
  Receive Date: 20250214
  Receipt Date: 20250214
  Transmission Date: 20250409
  Serious: Yes (Death)
  Sender: ROCHE
  Company Number: TW-ROCHE-10000197503

PATIENT
  Age: 59 Year
  Sex: Female

DRUGS (4)
  1. ATEZOLIZUMAB [Suspect]
     Active Substance: ATEZOLIZUMAB
     Indication: Small cell lung cancer extensive stage
     Route: 065
     Dates: start: 2024
  2. CARBOPLATIN [Suspect]
     Active Substance: CARBOPLATIN
     Indication: Small cell lung cancer extensive stage
     Route: 065
     Dates: start: 2024
  3. ETOPOSIDE [Suspect]
     Active Substance: ETOPOSIDE
     Indication: Small cell lung cancer extensive stage
     Route: 048
     Dates: start: 2024
  4. LURBINECTEDIN [Concomitant]
     Active Substance: LURBINECTEDIN
     Dates: start: 20240930

REACTIONS (6)
  - Disease progression [Fatal]
  - Pancytopenia [Fatal]
  - Bacteraemia [Fatal]
  - COVID-19 [Fatal]
  - Clostridial infection [Fatal]
  - Hepatitis acute [Fatal]
